FAERS Safety Report 7676556-2 (Version None)
Quarter: 2011Q3

REPORT INFORMATION
  Report Type: 
  Country: None (occurrence: None)
  Receive Date: 20110811
  Receipt Date: 20110803
  Transmission Date: 20111222
  Serious: Yes (Disabling)
  Sender: FDA-Public Use
  Company Number: DK-JNJFOC-20110801270

PATIENT
  Sex: Male

DRUGS (2)
  1. OXABENZ [Concomitant]
     Indication: SCHIZOPHRENIA
     Route: 065
  2. PALIPERIDONE [Suspect]
     Indication: SCHIZOPHRENIA
     Route: 058

REACTIONS (3)
  - OEDEMA PERIPHERAL [None]
  - PAIN IN EXTREMITY [None]
  - DRUG ADMINISTERED AT INAPPROPRIATE SITE [None]
